FAERS Safety Report 17767316 (Version 3)
Quarter: 2020Q3

REPORT INFORMATION
  Report Type: Spontaneous
  Country: US (occurrence: US)
  Receive Date: 20200511
  Receipt Date: 20200831
  Transmission Date: 20201102
  Serious: Yes (Life-Threatening, Hospitalization, Other)
  Sender: FDA-Public Use
  Company Number: US-PURDUE PHARMA-GBR-2020-0076640

PATIENT
  Age: 74 Year
  Sex: Female

DRUGS (2)
  1. NON?PMN MORPHINE SULFATE [Suspect]
     Active Substance: MORPHINE SULFATE
     Indication: PAIN
     Dosage: 10 MG/ML, [500 MG]
     Route: 037
  2. BUPIVACAINE. [Suspect]
     Active Substance: BUPIVACAINE
     Indication: PAIN
     Dosage: 35 MG/ML, [1750 MG]
     Route: 037

REACTIONS (5)
  - Toxicity to various agents [Unknown]
  - Respiratory depression [Unknown]
  - Status epilepticus [Recovered/Resolved]
  - Spinal anaesthesia [Unknown]
  - Encephalopathy [Unknown]
